FAERS Safety Report 10254115 (Version 1)
Quarter: 2014Q2

REPORT INFORMATION
  Report Type: Spontaneous
  Country: CH (occurrence: CH)
  Receive Date: 20140623
  Receipt Date: 20140623
  Transmission Date: 20141212
  Serious: Yes (Other)
  Sender: FDA-Public Use
  Company Number: PHHY2014CH073906

PATIENT
  Age: 68 Year
  Sex: Female
  Weight: 68 kg

DRUGS (5)
  1. LEVOFLOXACIN SANDOZ [Suspect]
     Indication: LOCALISED INFECTION
     Dosage: 250 MG, BID
     Route: 048
     Dates: start: 20140513, end: 20140517
  2. MARCOUMAR [Concomitant]
     Route: 048
  3. CONDROSULF [Concomitant]
     Route: 048
  4. MAG 2 [Concomitant]
     Route: 048
  5. CALCIUM D3 SANDOZ [Concomitant]
     Route: 048

REACTIONS (1)
  - Jaw disorder [Not Recovered/Not Resolved]
